FAERS Safety Report 4887320-1 (Version None)
Quarter: 2005Q4

REPORT INFORMATION
  Report Type: 
  Country: None (occurrence: None)
  Receive Date: 20051220
  Receipt Date: 20050909
  Transmission Date: 20060501
  Serious: Yes (Other)
  Sender: FDA-Public Use
  Company Number: HQWYE503916SEP05

PATIENT
  Sex: Female

DRUGS (3)
  1. EFFEXOR XR [Suspect]
     Dosage: 75 MG 2 X PER 1 DAY, ORAL
     Route: 048
  2. DARVOCET-N 50 [Suspect]
  3. VICODIN [Suspect]

REACTIONS (3)
  - DIZZINESS [None]
  - DRUG INTERACTION [None]
  - PARAESTHESIA [None]
